FAERS Safety Report 6824537-0 (Version None)
Quarter: 2010Q3

REPORT INFORMATION
  Report Type: 
  Country: None (occurrence: None)
  Receive Date: 20100708
  Receipt Date: 20070104
  Transmission Date: 20110219
  Serious: No
  Sender: FDA-Public Use
  Company Number: US-PFIZER INC-2006135739

PATIENT
  Sex: Female
  Weight: 49.44 kg

DRUGS (7)
  1. CHANTIX [Suspect]
     Indication: EX-TOBACCO USER
     Dates: start: 20061021
  2. VYTORIN [Concomitant]
     Indication: BLOOD CHOLESTEROL
  3. METOPROLOL [Concomitant]
  4. TRAZODONE [Concomitant]
  5. VITAMINS [Concomitant]
  6. CALCIUM CARBONATE [Concomitant]
  7. OXYBUTYNIN CHLORIDE [Concomitant]

REACTIONS (4)
  - CONSTIPATION [None]
  - DECREASED APPETITE [None]
  - NAUSEA [None]
  - WEIGHT DECREASED [None]
